FAERS Safety Report 9952032 (Version 2)
Quarter: 2014Q1

REPORT INFORMATION
  Report Type: Spontaneous
  Country: US (occurrence: US)
  Receive Date: 20140304
  Receipt Date: 20140304
  Transmission Date: 20141002
  Serious: No
  Sender: FDA-Public Use
  Company Number: US-AMGEN-USASP2013076024

PATIENT
  Age: 47 Year
  Sex: Male
  Weight: 100.68 kg

DRUGS (6)
  1. ENBREL [Suspect]
     Indication: PRODUCT USED FOR UNKNOWN INDICATION
     Dosage: 50 MG, QWK
     Route: 058
  2. GEMFIBROZIL [Concomitant]
     Dosage: 600 MG, UNK
     Route: 048
  3. OMEGA-3                            /01866101/ [Concomitant]
     Dosage: UNK
     Route: 048
  4. ULTRAM                             /00599202/ [Concomitant]
     Dosage: 50 MG, UNK
     Route: 048
  5. TYLENOL                            /00020001/ [Concomitant]
     Dosage: 500 MG, UNK
     Route: 048
  6. INFLUENZA VACCINES [Concomitant]
     Dosage: UNK

REACTIONS (4)
  - Headache [Unknown]
  - Pain [Unknown]
  - Neuropathy peripheral [Unknown]
  - Influenza [Unknown]
